FAERS Safety Report 5359901-2 (Version None)
Quarter: 2007Q2

REPORT INFORMATION
  Report Type: 
  Country: None (occurrence: None)
  Receive Date: 20070531
  Receipt Date: 20070503
  Transmission Date: 20071010
  Serious: Yes (Hospitalization)
  Sender: FDA-Public Use
  Company Number: 07P-163-0367021-00

PATIENT
  Age: 49 Year
  Sex: Male
  Weight: 117.3 kg

DRUGS (2)
  1. TRICOR [Suspect]
     Indication: HYPERLIPIDAEMIA
     Dosage: 145 MG, 1 IN 1 D, PER ORAL
     Route: 048
     Dates: start: 20060101, end: 20070404
  2. BENICAR/HYDROCHLOROTHIAZIDE [Concomitant]

REACTIONS (3)
  - BLOOD CREATININE INCREASED [None]
  - HAEMATURIA [None]
  - RHABDOMYOLYSIS [None]
